FAERS Safety Report 25972218 (Version 2)
Quarter: 2025Q4

REPORT INFORMATION
  Report Type: Spontaneous
  Country: US (occurrence: US)
  Receive Date: 20251029
  Receipt Date: 20251128
  Transmission Date: 20260117
  Serious: Yes (Other)
  Sender: AUROBINDO
  Company Number: US-AUROBINDO-AUR-APL-2025-053822

PATIENT

DRUGS (1)
  1. HYDROCORTISONE [Suspect]
     Active Substance: HYDROCORTISONE
     Indication: Secondary adrenocortical insufficiency
     Dosage: UNK
     Route: 065

REACTIONS (7)
  - Mental impairment [Unknown]
  - Confusional state [Unknown]
  - Fatigue [Unknown]
  - Heart rate increased [Unknown]
  - Hypotension [Unknown]
  - Therapeutic response decreased [Unknown]
  - Product substitution issue [Unknown]
